FAERS Safety Report 24240614 (Version 1)
Quarter: 2024Q3

REPORT INFORMATION
  Report Type: Spontaneous
  Country: IN (occurrence: IN)
  Receive Date: 20240822
  Receipt Date: 20240822
  Transmission Date: 20241017
  Serious: Yes (Hospitalization, Other)
  Sender: PFIZER
  Company Number: IN-PFIZER INC-PV202400108820

PATIENT
  Age: 36 Year
  Sex: Female

DRUGS (1)
  1. LORLATINIB [Suspect]
     Active Substance: LORLATINIB
     Indication: Lung neoplasm malignant
     Dosage: 100 MG, OD

REACTIONS (8)
  - Second primary malignancy [Unknown]
  - Lymphoma [Unknown]
  - Pyrexia [Recovered/Resolved]
  - Leukopenia [Recovering/Resolving]
  - Anisocytosis [Recovering/Resolving]
  - Lymphocytosis [Recovering/Resolving]
  - Platelet count decreased [Recovering/Resolving]
  - Haemoglobin decreased [Recovering/Resolving]
